FAERS Safety Report 12098568 (Version 1)
Quarter: 2016Q1

REPORT INFORMATION
  Report Type: Spontaneous
  Country: US (occurrence: US)
  Receive Date: 20160222
  Receipt Date: 20160222
  Transmission Date: 20160526
  Serious: No
  Sender: FDA-Public Use
  Company Number: US-ASTRAZENECA-2016SE08257

PATIENT
  Sex: Male
  Weight: 122.5 kg

DRUGS (1)
  1. SYMBICORT [Suspect]
     Active Substance: BUDESONIDE\FORMOTEROL FUMARATE DIHYDRATE
     Indication: ASTHMA
     Dosage: 80 4.5 MCG 2 PUFFS TWICE A DAY
     Route: 055
     Dates: start: 20160114

REACTIONS (10)
  - Dyspnoea [Unknown]
  - Ear pain [Unknown]
  - Abdominal pain [Unknown]
  - Dysphonia [Unknown]
  - Headache [Unknown]
  - Chest discomfort [Unknown]
  - Oropharyngeal pain [Not Recovered/Not Resolved]
  - Nervousness [Unknown]
  - Agitation [Unknown]
  - Abdominal discomfort [Unknown]
